FAERS Safety Report 5750483-X (Version None)
Quarter: 2008Q2

REPORT INFORMATION
  Report Type: 
  Country: None (occurrence: None)
  Receive Date: 20080528
  Receipt Date: 20080206
  Transmission Date: 20081010
  Serious: No
  Sender: FDA-Public Use
  Company Number: US-KINGPHARMUSA00001-K200800169

PATIENT

DRUGS (4)
  1. AVINZA [Suspect]
     Indication: BACK PAIN
     Dosage: 30 MG, QD
     Route: 048
     Dates: start: 20071001
  2. AVINZA [Suspect]
     Dosage: 30 MG, QD
     Route: 048
  3. SOMA [Concomitant]
     Dosage: 2 UNK, QD
  4. DARVOCET-N [Concomitant]
     Indication: BACK PAIN
     Dosage: UNK, PRN

REACTIONS (2)
  - DRUG INEFFECTIVE [None]
  - INTENTIONAL DRUG MISUSE [None]
